FAERS Safety Report 13321996 (Version 1)
Quarter: 2017Q1

REPORT INFORMATION
  Report Type: Spontaneous
  Country: US (occurrence: US)
  Receive Date: 20170309
  Receipt Date: 20170309
  Transmission Date: 20170428
  Serious: No
  Sender: FDA-Public Use
  Company Number: US-PFIZER INC-2017092860

PATIENT
  Age: 75 Year
  Sex: Male

DRUGS (4)
  1. COZAAR [Concomitant]
     Active Substance: LOSARTAN POTASSIUM
     Dosage: UNK
  2. SUTENT [Suspect]
     Active Substance: SUNITINIB MALATE
     Indication: RENAL CELL CARCINOMA STAGE IV
     Dosage: 37.5 MG, CYCLIC [28 DAYS ON/14 DAYS OFF]
     Dates: start: 201612
  3. DITROPAN [Concomitant]
     Active Substance: OXYBUTYNIN CHLORIDE
     Dosage: UNK
  4. MEGACE [Concomitant]
     Active Substance: MEGESTROL ACETATE
     Dosage: UNK

REACTIONS (5)
  - Oral discomfort [Unknown]
  - Tongue discomfort [Unknown]
  - Oral pain [Unknown]
  - Fatigue [Unknown]
  - Glossodynia [Unknown]
